FAERS Safety Report 10171033 (Version 1)
Quarter: 2014Q2

REPORT INFORMATION
  Report Type: Report from Study
  Country: DE (occurrence: DE)
  Receive Date: 20140514
  Receipt Date: 20140514
  Transmission Date: 20141212
  Serious: Yes (Hospitalization)
  Sender: FDA-Public Use
  Company Number: DE-ASTELLAS-2014US005297

PATIENT
  Age: 82 Year
  Sex: Female

DRUGS (2)
  1. ERLOTINIB [Suspect]
     Indication: PANCREATIC CARCINOMA
     Route: 048
     Dates: start: 20131010, end: 20140403
  2. GEMCITABINE HYDROCHLORIDE [Suspect]
     Indication: PANCREATIC CARCINOMA
     Route: 042
     Dates: start: 20131010, end: 20140403

REACTIONS (3)
  - General physical health deterioration [Unknown]
  - Cholestasis [Recovered/Resolved with Sequelae]
  - Cholangitis [Recovered/Resolved with Sequelae]
